FAERS Safety Report 7431984-5 (Version None)
Quarter: 2011Q2

REPORT INFORMATION
  Report Type: 
  Country: None (occurrence: None)
  Receive Date: 20110419
  Receipt Date: 20110419
  Transmission Date: 20111010
  Serious: No
  Sender: FDA-Public Use
  Company Number: None

PATIENT
  Age: 55 Year
  Sex: Female
  Weight: 96.1626 kg

DRUGS (1)
  1. SIMVASTATIN [Suspect]
     Dates: start: 20110416, end: 20110417

REACTIONS (2)
  - PRODUCT SUBSTITUTION ISSUE [None]
  - LIP SWELLING [None]
